FAERS Safety Report 5519719-4 (Version None)
Quarter: 2007Q4

REPORT INFORMATION
  Report Type: 
  Country: None (occurrence: None)
  Receive Date: 20071116
  Receipt Date: 20071019
  Transmission Date: 20080405
  Serious: No
  Sender: FDA-Public Use
  Company Number: A0663810A

PATIENT
  Sex: Male

DRUGS (3)
  1. COREG CR [Suspect]
  2. ALLOPURINOL [Concomitant]
  3. FRUSEMIDE [Concomitant]

REACTIONS (13)
  - ADVERSE EVENT [None]
  - ANGER [None]
  - CONDITION AGGRAVATED [None]
  - CONSTIPATION [None]
  - DIZZINESS [None]
  - EPINEPHRINE ABNORMAL [None]
  - FLUID RETENTION [None]
  - HEART RATE INCREASED [None]
  - LETHARGY [None]
  - MALAISE [None]
  - OEDEMA PERIPHERAL [None]
  - SKIN CHAPPED [None]
  - WEIGHT INCREASED [None]
